FAERS Safety Report 5826282-7 (Version None)
Quarter: 2008Q3

REPORT INFORMATION
  Report Type: 
  Country: None (occurrence: None)
  Receive Date: 20080729
  Receipt Date: 20080724
  Transmission Date: 20090109
  Serious: Yes (Hospitalization)
  Sender: FDA-Public Use
  Company Number: CN-PFIZER INC-2008053519

PATIENT
  Age: 20 Year
  Sex: Male

DRUGS (1)
  1. ZELDOX (CAPSULES) [Suspect]
     Indication: HALLUCINATION
     Dosage: DAILY DOSE:160MG
     Route: 048

REACTIONS (6)
  - DRUG INEFFECTIVE [None]
  - HYPERTONIA [None]
  - INITIAL INSOMNIA [None]
  - NAUSEA [None]
  - POOR QUALITY SLEEP [None]
  - SOMNOLENCE [None]
